FAERS Safety Report 11247910 (Version 2)
Quarter: 2016Q2

REPORT INFORMATION
  Report Type: Spontaneous
  Country: US (occurrence: US)
  Receive Date: 20150708
  Receipt Date: 20160607
  Transmission Date: 20160815
  Serious: Yes (Other)
  Sender: FDA-Public Use
  Company Number: US-BAYER-2015-365317

PATIENT

DRUGS (1)
  1. CIPRO [Suspect]
     Active Substance: CIPROFLOXACIN HYDROCHLORIDE
     Indication: BACTERIAL INFECTION
     Dosage: UNK

REACTIONS (12)
  - Nervous system disorder [None]
  - Injury [None]
  - Anhedonia [None]
  - Emotional distress [None]
  - Neuropathy peripheral [None]
  - Pain [None]
  - Anxiety [None]
  - Mental disorder [None]
  - Cardiovascular disorder [None]
  - General physical health deterioration [None]
  - Musculoskeletal disorder [None]
  - Skin disorder [None]
